FAERS Safety Report 10763688 (Version 7)
Quarter: 2015Q2

REPORT INFORMATION
  Report Type: Report from Study
  Country: US (occurrence: US)
  Receive Date: 20150204
  Receipt Date: 20150520
  Transmission Date: 20150821
  Serious: Yes (Hospitalization, Other)
  Sender: FDA-Public Use
  Company Number: US-SA-2015SA009819

PATIENT
  Age: 67 Year
  Sex: Female

DRUGS (10)
  1. AUBAGIO [Suspect]
     Active Substance: TERIFLUNOMIDE
     Indication: MULTIPLE SCLEROSIS
     Route: 048
     Dates: start: 2015, end: 20150410
  2. SEROQUEL [Concomitant]
     Active Substance: QUETIAPINE FUMARATE
  3. CYMBALTA [Concomitant]
     Active Substance: DULOXETINE HYDROCHLORIDE
  4. LASIX [Concomitant]
     Active Substance: FUROSEMIDE
  5. ARICEPT [Concomitant]
     Active Substance: DONEPEZIL HYDROCHLORIDE
     Indication: DEMENTIA
  6. PREMARIN [Concomitant]
     Active Substance: ESTROGENS, CONJUGATED
  7. AUBAGIO [Suspect]
     Active Substance: TERIFLUNOMIDE
     Indication: MULTIPLE SCLEROSIS
     Route: 048
     Dates: start: 20140120
  8. AUBAGIO [Suspect]
     Active Substance: TERIFLUNOMIDE
     Indication: MULTIPLE SCLEROSIS
     Route: 048
     Dates: start: 20150120, end: 20150202
  9. AMITRIPTYLINE [Concomitant]
     Active Substance: AMITRIPTYLINE
     Indication: VERTIGO
     Dates: end: 201501
  10. DIAZEPAM. [Concomitant]
     Active Substance: DIAZEPAM

REACTIONS (16)
  - Hysterectomy [Unknown]
  - Gastrooesophageal reflux disease [Unknown]
  - Anorectal discomfort [Unknown]
  - Abdominal discomfort [Unknown]
  - Nausea [Unknown]
  - Wrong technique in drug usage process [Unknown]
  - Dyspnoea [Unknown]
  - Polyp [Unknown]
  - Chest pain [Unknown]
  - Head discomfort [Unknown]
  - Diarrhoea [Not Recovered/Not Resolved]
  - Dyspepsia [Unknown]
  - Head discomfort [Unknown]
  - Migraine [Unknown]
  - Pain in extremity [Unknown]
  - Vulvovaginal discomfort [Unknown]

NARRATIVE: CASE EVENT DATE: 201501
